FAERS Safety Report 24463600 (Version 2)
Quarter: 2024Q4

REPORT INFORMATION
  Report Type: Spontaneous
  Country: JP (occurrence: JP)
  Receive Date: 20241018
  Receipt Date: 20241029
  Transmission Date: 20250115
  Serious: Yes (Other)
  Sender: GENMAB
  Company Number: JP-GENMAB-2024-01922AA

PATIENT
  Age: 73 Year
  Sex: Male

DRUGS (2)
  1. EPKINLY [Suspect]
     Active Substance: EPCORITAMAB-BYSP
     Indication: Diffuse large B-cell lymphoma
     Dosage: UNK, UP TO CYCLE 6
     Route: 065
     Dates: start: 20240116, end: 2024
  2. PREDNISOLONE [Concomitant]
     Active Substance: PREDNISOLONE
     Indication: Premedication
     Dosage: UNK
     Dates: start: 202401, end: 2024

REACTIONS (8)
  - Diffuse large B-cell lymphoma [Unknown]
  - Hypokalaemia [Unknown]
  - Cytokine release syndrome [Recovered/Resolved]
  - Cytokine release syndrome [Recovered/Resolved]
  - Cytokine release syndrome [Recovered/Resolved]
  - Blood lactate dehydrogenase increased [Unknown]
  - Blood lactate dehydrogenase increased [Unknown]
  - Interleukin-2 receptor increased [Unknown]

NARRATIVE: CASE EVENT DATE: 20240101
